FAERS Safety Report 18802365 (Version 1)
Quarter: 2021Q1

REPORT INFORMATION
  Report Type: Spontaneous
  Country: CA (occurrence: CA)
  Receive Date: 20210129
  Receipt Date: 20210129
  Transmission Date: 20210419
  Serious: Yes (Hospitalization)
  Sender: FDA-Public Use
  Company Number: CA-TEVA-2021-CA-1871788

PATIENT
  Age: 47 Year
  Sex: Female
  Weight: 42 kg

DRUGS (17)
  1. DEXAMETHASONE. [Concomitant]
     Active Substance: DEXAMETHASONE
     Route: 065
  2. IMODIUM [Concomitant]
     Active Substance: LOPERAMIDE HYDROCHLORIDE
  3. ALMAGEL [Concomitant]
  4. CANDESARTAN. [Concomitant]
     Active Substance: CANDESARTAN
  5. SECARIS [Concomitant]
     Active Substance: PROPYLENE GLYCOL
  6. CARBOPLATIN. [Suspect]
     Active Substance: CARBOPLATIN
     Indication: BREAST CANCER
     Route: 065
  7. PANTOLOC [Concomitant]
     Active Substance: PANTOPRAZOLE SODIUM
  8. LAX?A?DAY [Concomitant]
     Active Substance: POLYETHYLENE GLYCOL 3350
  9. LORAZEPAM. [Concomitant]
     Active Substance: LORAZEPAM
  10. PRISTIQ EXTENDED?RELEASE [Concomitant]
     Active Substance: DESVENLAFAXINE SUCCINATE
  11. PROCHLORPERAZINE. [Concomitant]
     Active Substance: PROCHLORPERAZINE
  12. CALCIUM [Concomitant]
     Active Substance: CALCIUM
  13. HYDROMORPHONE [Concomitant]
     Active Substance: HYDROMORPHONE
  14. ONDANSETRON [Concomitant]
     Active Substance: ONDANSETRON
  15. GEMCITABINE. [Suspect]
     Active Substance: GEMCITABINE
     Indication: BREAST CANCER
     Route: 065
  16. NAPROSYN [Concomitant]
     Active Substance: NAPROXEN
  17. SUPER MAGIC MOUTH [Concomitant]

REACTIONS (1)
  - Febrile neutropenia [Not Recovered/Not Resolved]
